FAERS Safety Report 4353144-7 (Version None)
Quarter: 2004Q2

REPORT INFORMATION
  Report Type: 
  Country: None (occurrence: None)
  Receive Date: 20040429
  Receipt Date: 20040416
  Transmission Date: 20050107
  Serious: Yes (Life-Threatening, Hospitalization)
  Sender: FDA-Public Use
  Company Number: 2003116685

PATIENT
  Age: 71 Year
  Sex: Male

DRUGS (8)
  1. FELDENE [Suspect]
     Indication: PERIARTHRITIS
     Dosage: 20 MG (DAILY), INTRAMUSCULAR
     Route: 030
     Dates: start: 20030831, end: 20030902
  2. CLOPIDOGREL BISULFATE [Suspect]
     Indication: ILL-DEFINED DISORDER
     Dosage: 75 MG (DAILY), ORAL
     Route: 048
     Dates: start: 20030811
  3. ACETYLSALICYLIC ACID SRT [Suspect]
     Indication: ILL-DEFINED DISORDER
     Dosage: 160 MG (DAILY), ORAL
     Route: 048
     Dates: start: 20030811, end: 20030902
  4. AMLODIPINE BESYLATE [Concomitant]
  5. ATENOLOL [Concomitant]
  6. GLYCERYL TRINITRATE [Concomitant]
  7. RAMIPRIL [Concomitant]
  8. SIMVASTATIN [Concomitant]

REACTIONS (5)
  - ANAEMIA [None]
  - DUODENAL ULCER [None]
  - HAEMATEMESIS [None]
  - MELAENA [None]
  - PAIN [None]
